FAERS Safety Report 12964088 (Version 1)
Quarter: 2016Q4

REPORT INFORMATION
  Report Type: Spontaneous
  Country: BG (occurrence: BG)
  Receive Date: 20161122
  Receipt Date: 20161122
  Transmission Date: 20170207
  Serious: Yes (Hospitalization, Other)
  Sender: FDA-Public Use
  Company Number: BG-ASTRAZENECA-2016SF21872

PATIENT
  Age: 65 Year
  Sex: Female

DRUGS (7)
  1. ACETYLSALICYLIC ACID [Concomitant]
     Active Substance: ASPIRIN
  2. INSULIN [Concomitant]
     Active Substance: INSULIN NOS
  3. NORVASC [Concomitant]
     Active Substance: AMLODIPINE BESYLATE
  4. BETALOC ZOK [Suspect]
     Active Substance: METOPROLOL SUCCINATE
     Route: 048
  5. BRILIQUE [Concomitant]
     Active Substance: TICAGRELOR
  6. CRESTOR [Suspect]
     Active Substance: ROSUVASTATIN CALCIUM
     Route: 048
  7. ISODINIT [Concomitant]

REACTIONS (1)
  - Angina unstable [Unknown]
